FAERS Safety Report 9490612 (Version 1)
Quarter: 2013Q3

REPORT INFORMATION
  Report Type: Spontaneous
  Country: FR (occurrence: FR)
  Receive Date: 20130830
  Receipt Date: 20130830
  Transmission Date: 20140515
  Serious: Yes (Other)
  Sender: FDA-Public Use
  Company Number: PHHY2013FR094252

PATIENT
  Age: 9 Year
  Sex: 0

DRUGS (1)
  1. RITALINE LP [Suspect]
     Indication: COGNITIVE DISORDER
     Dosage: UNK UKN, UNK

REACTIONS (2)
  - Polyuria [Unknown]
  - Polydipsia [Unknown]
